FAERS Safety Report 8765951 (Version 1)
Quarter: 2012Q4

REPORT INFORMATION
  Report Type: 
  Country: BR (occurrence: BR)
  Receive Date: 20120904
  Receipt Date: 20120904
  Transmission Date: 20130627
  Serious: Yes (Hospitalization, Other)
  Sender: FDA-Public Use
  Company Number: BR-ARROW-2012-15082

PATIENT
  Age: 45 Year
  Sex: Female

DRUGS (5)
  1. QUETIAPINE [Suspect]
     Indication: INTENTIONAL OVERDOSE
     Dosage: UNK
     Route: 048
  2. CLONAZEPAM (UNKNOWN) [Suspect]
     Indication: INTENTIONAL OVERDOSE
     Dosage: UNK
     Route: 048
  3. PROMETHAZINE [Suspect]
     Indication: INTENTIONAL OVERDOSE
     Dosage: UNK
     Route: 048
  4. OXCARBAZEPINE [Suspect]
     Indication: INTENTIONAL OVERDOSE
     Dosage: UNK
     Route: 048
  5. PHENOBARBITAL [Suspect]
     Indication: INTENTIONAL OVERDOSE
     Dosage: UNK
     Route: 048

REACTIONS (4)
  - Rhabdomyolysis [Recovered/Resolved]
  - Intentional overdose [Recovered/Resolved]
  - Coma blister [Recovered/Resolved]
  - Intentional overdose [None]
